FAERS Safety Report 15393319 (Version 1)
Quarter: 2018Q3

REPORT INFORMATION
  Report Type: Other
  Country: US (occurrence: US)
  Receive Date: 20180917
  Receipt Date: 20180917
  Transmission Date: 20181010
  Serious: Yes (Death, Life-Threatening, Hospitalization)
  Sender: FDA-Public Use
  Company Number: US-LEADIANT BIOSCIENCES INC-2017STPI000728

PATIENT
  Sex: Male

DRUGS (5)
  1. VINCRISTINE [Concomitant]
     Active Substance: VINCRISTINE
     Indication: BRAIN NEOPLASM MALIGNANT
  2. DEXAMETHASONE. [Concomitant]
     Active Substance: DEXAMETHASONE
     Indication: PRODUCT USED FOR UNKNOWN INDICATION
  3. MATULANE [Suspect]
     Active Substance: PROCARBAZINE HYDROCHLORIDE
     Indication: BRAIN NEOPLASM MALIGNANT
     Dosage: 100 MG, DAILY, DAYS 8?21
     Route: 048
     Dates: start: 20170905, end: 20170911
  4. LEVETIRACETAM. [Concomitant]
     Active Substance: LEVETIRACETAM
     Indication: PRODUCT USED FOR UNKNOWN INDICATION
  5. LOMUSTINE. [Concomitant]
     Active Substance: LOMUSTINE
     Indication: BRAIN NEOPLASM MALIGNANT

REACTIONS (3)
  - Pneumocystis jirovecii pneumonia [Fatal]
  - Varicella zoster virus infection [Fatal]
  - Pulmonary embolism [Fatal]
